FAERS Safety Report 12817251 (Version 1)
Quarter: 2016Q4

REPORT INFORMATION
  Report Type: Report from Study
  Country: US (occurrence: US)
  Receive Date: 20161006
  Receipt Date: 20161006
  Transmission Date: 20170207
  Serious: Yes (Hospitalization, Other)
  Sender: FDA-Public Use
  Company Number: US-ROCHE-1278554

PATIENT
  Age: 41 Year
  Sex: Female
  Weight: 51.6 kg

DRUGS (4)
  1. BEVACIZUMAB [Suspect]
     Active Substance: BEVACIZUMAB
     Indication: OVARIAN EPITHELIAL CANCER
     Dosage: LAST ADMINISTERED DATE: 05 AUG 2013 AND DOSE: 800 MG
     Route: 042
  2. PACLITAXEL. [Suspect]
     Active Substance: PACLITAXEL
     Indication: OVARIAN EPITHELIAL CANCER
     Dosage: LAST ADMINISTERED DATE: 12 AUG 2013 AND DOSE: 305 MG?135 MG/M2 IV ON DAY 1 AND 60MG/M2 IP DAY 8 (CYC
     Route: 042
  3. VELIPARIB [Suspect]
     Active Substance: VELIPARIB
     Indication: OVARIAN EPITHELIAL CANCER
     Dosage: LAST ADMINISTERED DATE AND TOTAL DOSE: 12 AUG 2013 AND 2250 MG
     Route: 048
  4. CISPLATIN. [Suspect]
     Active Substance: CISPLATIN
     Indication: OVARIAN EPITHELIAL CANCER
     Dosage: LAST ADMINISTERED DATE: 06 AUG 2013 AND DOSE: 120 MG
     Route: 042

REACTIONS (8)
  - Cerebrovascular accident [Unknown]
  - Dehydration [Unknown]
  - Dehydration [Recovered/Resolved]
  - Hypomagnesaemia [Unknown]
  - Anaemia [Unknown]
  - Lymphocyte count decreased [Unknown]
  - Hypomagnesaemia [Unknown]
  - Neutrophil count decreased [Unknown]

NARRATIVE: CASE EVENT DATE: 20130810
